FAERS Safety Report 6957932-X (Version None)
Quarter: 2010Q3

REPORT INFORMATION
  Report Type: 
  Country: None (occurrence: None)
  Receive Date: 20100817
  Receipt Date: 20091120
  Transmission Date: 20110219
  Serious: No
  Sender: FDA-Public Use
  Company Number: 20097318

PATIENT
  Age: 77 Year
  Sex: Male

DRUGS (3)
  1. LIORESAL [Suspect]
     Indication: MUSCLE SPASTICITY
     Dosage: 144.28 MCG, DAILY, INTRATHECAL
     Route: 037
  2. HYDROMORPHONE HCL [Concomitant]
  3. BUPIVACAINE HCL [Concomitant]

REACTIONS (1)
  - THERAPY CESSATION [None]
